FAERS Safety Report 12894208 (Version 1)
Quarter: 2016Q4

REPORT INFORMATION
  Report Type: Spontaneous
  Country: JP (occurrence: JP)
  Receive Date: 20161028
  Receipt Date: 20161028
  Transmission Date: 20170207
  Serious: Yes (Hospitalization)
  Sender: FDA-Public Use
  Company Number: JP-SA-2016SA196279

PATIENT
  Sex: Male

DRUGS (10)
  1. ETHAMBUTOL [Suspect]
     Active Substance: ETHAMBUTOL HYDROCHLORIDE
     Indication: ATYPICAL MYCOBACTERIAL INFECTION
     Route: 048
     Dates: start: 201010
  2. RIFADIN [Suspect]
     Active Substance: RIFAMPIN
     Indication: ATYPICAL MYCOBACTERIAL INFECTION
     Dosage: 150 MG CAPSULES
     Route: 048
     Dates: start: 201010
  3. CRAVIT [Suspect]
     Active Substance: LEVOFLOXACIN
     Indication: ATYPICAL MYCOBACTERIAL INFECTION
     Route: 048
     Dates: start: 201409
  4. MINOMYCIN [Concomitant]
     Active Substance: MINOCYCLINE HYDROCHLORIDE
  5. ERYTHROMYCIN. [Concomitant]
     Active Substance: ERYTHROMYCIN
  6. CLARITHROMYCIN. [Concomitant]
     Active Substance: CLARITHROMYCIN
     Dates: start: 201010
  7. DORIPENEM [Concomitant]
     Active Substance: DORIPENEM
  8. MICAFUNGIN [Concomitant]
     Active Substance: MICAFUNGIN
  9. VORICONAZOLE. [Concomitant]
     Active Substance: VORICONAZOLE
  10. TAZOBACTAM/PIPERACILLIN [Concomitant]

REACTIONS (1)
  - Illusion [Recovering/Resolving]

NARRATIVE: CASE EVENT DATE: 201603
